FAERS Safety Report 9737487 (Version 2)
Quarter: 2014Q1

REPORT INFORMATION
  Report Type: Spontaneous
  Country: IT (occurrence: IT)
  Receive Date: 20131206
  Receipt Date: 20140128
  Transmission Date: 20141002
  Serious: Yes (Life-Threatening, Other)
  Sender: FDA-Public Use
  Company Number: IT-MERCK-1312ITA002815

PATIENT
  Age: 46 Year
  Sex: Male

DRUGS (3)
  1. VICTRELIS [Suspect]
     Indication: HEPATITIS C
     Dosage: 2400 MG DAILY
     Route: 048
     Dates: start: 20130717, end: 20131110
  2. PEGINTRON [Suspect]
     Indication: HEPATITIS C
     Dosage: 100 MICROGRAMS, QW
     Route: 058
     Dates: start: 20130614, end: 20131110
  3. COPEGUS [Concomitant]
     Indication: HEPATITIS C
     Dosage: 1000 MG
     Route: 048
     Dates: start: 20130614, end: 20131110

REACTIONS (2)
  - Lung abscess [Recovered/Resolved with Sequelae]
  - Mycetoma mycotic [Recovered/Resolved with Sequelae]
